FAERS Safety Report 23756775 (Version 1)
Quarter: 2024Q2

REPORT INFORMATION
  Report Type: Spontaneous
  Country: US (occurrence: US)
  Receive Date: 20240418
  Receipt Date: 20240418
  Transmission Date: 20240716
  Serious: Yes (Hospitalization)
  Sender: FDA-Public Use
  Company Number: US-GTI-000241

PATIENT
  Age: 14 Year
  Sex: Female

DRUGS (4)
  1. PREDNISONE [Suspect]
     Active Substance: PREDNISONE
     Indication: Pemphigus
     Route: 048
  2. MYCOPHENOLATE MOFETIL [Suspect]
     Active Substance: MYCOPHENOLATE MOFETIL
     Indication: Pemphigus
     Route: 065
  3. HUMAN IMMUNOGLOBULIN G [Suspect]
     Active Substance: HUMAN IMMUNOGLOBULIN G
     Indication: Pemphigus
     Dosage: IVIG TREATMENT 15 G/D (0.4 MG/KG/D)
     Route: 042
  4. METHYLPREDNISOLONE [Suspect]
     Active Substance: METHYLPREDNISOLONE
     Indication: Pemphigus
     Route: 042

REACTIONS (7)
  - Hypertrichosis [Recovered/Resolved]
  - Oedema [Recovered/Resolved]
  - Infection [Recovered/Resolved]
  - Cushingoid [Recovered/Resolved]
  - Pemphigus [Recovered/Resolved]
  - Disease recurrence [Recovered/Resolved]
  - Sepsis [Recovered/Resolved]
